FAERS Safety Report 6065270-5 (Version None)
Quarter: 2009Q1

REPORT INFORMATION
  Report Type: 
  Country: None (occurrence: None)
  Receive Date: 20090204
  Receipt Date: 20090128
  Transmission Date: 20090719
  Serious: Yes (Hospitalization, Other)
  Sender: FDA-Public Use
  Company Number: CA-ASTRAZENECA-2002UW14452

PATIENT
  Age: 29 Year
  Sex: Female
  Weight: 50 kg

DRUGS (1)
  1. EMLA [Suspect]
     Route: 061

REACTIONS (3)
  - CHEST DISCOMFORT [None]
  - METHAEMOGLOBINAEMIA [None]
  - SYNCOPE [None]
